FAERS Safety Report 6174820-X (Version None)
Quarter: 2009Q2

REPORT INFORMATION
  Report Type: 
  Country: None (occurrence: None)
  Receive Date: 20090430
  Receipt Date: 20081119
  Transmission Date: 20091009
  Serious: Yes (Other)
  Sender: FDA-Public Use
  Company Number: US-ASTRAZENECA-2008UW25974

PATIENT
  Age: 78 Year
  Sex: Male
  Weight: 77.1 kg

DRUGS (9)
  1. NEXIUM [Suspect]
     Indication: ULCER
     Dosage: ONE HOUR PRIOR TO BREAKFAST
     Route: 048
  2. PRILOSEC OTC [Suspect]
     Dosage: BEFORE BED
     Route: 048
  3. PLAVIX [Concomitant]
  4. ASPIRIN [Concomitant]
  5. PROPRANOLOL [Concomitant]
  6. HYDROCHLOROTHIAZIDE [Concomitant]
  7. VITAMINS [Concomitant]
  8. LIPITOR [Concomitant]
  9. CLONAZEPAM [Concomitant]

REACTIONS (4)
  - ABDOMINAL DISTENSION [None]
  - CHEST PAIN [None]
  - DECREASED APPETITE [None]
  - PAIN [None]
